FAERS Safety Report 8033089-1 (Version None)
Quarter: 2012Q1

REPORT INFORMATION
  Report Type: 
  Country: None (occurrence: None)
  Receive Date: 20120110
  Receipt Date: 20120104
  Transmission Date: 20120608
  Serious: Yes (Other)
  Sender: FDA-Public Use
  Company Number: GB-ABBOTT-12P-167-0888923-00

PATIENT
  Age: 53 Year
  Sex: Female

DRUGS (1)
  1. PERINDOPRIL [Suspect]
     Indication: PRODUCT USED FOR UNKNOWN INDICATION
     Route: 048

REACTIONS (3)
  - GASTROINTESTINAL DISORDER [None]
  - CAMPYLOBACTER INFECTION [None]
  - URTICARIA CHRONIC [None]
